FAERS Safety Report 10231368 (Version 1)
Quarter: 2014Q2

REPORT INFORMATION
  Report Type: Spontaneous
  Country: US (occurrence: None)
  Receive Date: 20140506
  Receipt Date: 20140506
  Transmission Date: 20141212
  Serious: Yes (Life-Threatening, Other)
  Sender: FDA-Public Use
  Company Number: 1308063

PATIENT
  Age: 73 Year
  Sex: Female
  Weight: 50.35 kg

DRUGS (3)
  1. AVASTIN (BEVACIZUMAB) [Suspect]
     Indication: NON-SMALL CELL LUNG CANCER
     Dosage: 15MG/KG, 1 IN 3 WK INTRAVENOUS (NOT OTHERWISE SPECIFIED)
     Route: 042
     Dates: start: 20131001, end: 20131014
  2. CARBOPLATIN (CARBOPLATIN) [Concomitant]
  3. TAXOL (PACLITAXEL) [Concomitant]

REACTIONS (5)
  - Deep vein thrombosis [None]
  - Pulmonary embolism [None]
  - Subarachnoid haemorrhage [None]
  - Pulmonary thrombosis [None]
  - Thrombosis [None]
